FAERS Safety Report 14085602 (Version 2)
Quarter: 2017Q4

REPORT INFORMATION
  Report Type: Report from Study
  Country: AU (occurrence: AU)
  Receive Date: 20171013
  Receipt Date: 20171023
  Transmission Date: 20180321
  Serious: Yes (Other)
  Sender: FDA-Public Use
  Company Number: AU-REGENERON PHARMACEUTICALS, INC.-2017-24086

PATIENT

DRUGS (1)
  1. EYLEA [Suspect]
     Active Substance: AFLIBERCEPT
     Indication: DIABETIC RETINAL OEDEMA
     Dosage: BOTH EYE EVERY 7 WEEKS LAST DOSE WAS 03-OCT-2017
     Route: 031
     Dates: start: 20150801

REACTIONS (6)
  - Eye haemorrhage [Recovering/Resolving]
  - Gait disturbance [Unknown]
  - Visual impairment [Recovering/Resolving]
  - Obesity [Not Recovered/Not Resolved]
  - Blood glucose increased [Not Recovered/Not Resolved]
  - Injection site pain [Recovering/Resolving]

NARRATIVE: CASE EVENT DATE: 20171003
